FAERS Safety Report 15941654 (Version 2)
Quarter: 2019Q1

REPORT INFORMATION
  Report Type: Spontaneous
  Country: US (occurrence: US)
  Receive Date: 20190208
  Receipt Date: 20190320
  Transmission Date: 20190417
  Serious: Yes (Life-Threatening, Hospitalization, Other)
  Sender: FDA-Public Use
  Company Number: US-DRREDDYS-USA/USA/19/0107615

PATIENT
  Age: 67 Year
  Sex: Female

DRUGS (1)
  1. IBUPROFEN. [Suspect]
     Active Substance: IBUPROFEN
     Indication: HIP ARTHROPLASTY

REACTIONS (13)
  - Abdominal abscess [Unknown]
  - Hypotension [Recovering/Resolving]
  - Gastric perforation [Recovering/Resolving]
  - Chills [Recovered/Resolved]
  - Thrombosis [Unknown]
  - Haematoma [Unknown]
  - Splenic artery aneurysm [Recovering/Resolving]
  - Fatigue [Recovered/Resolved]
  - Sepsis [Unknown]
  - Gastric ulcer [Recovering/Resolving]
  - Haemorrhage [Recovering/Resolving]
  - Gastric haemorrhage [Recovering/Resolving]
  - Dizziness [Recovered/Resolved]
